FAERS Safety Report 17858598 (Version 2)
Quarter: 2020Q2

REPORT INFORMATION
  Report Type: Report from Study
  Country: None (occurrence: US)
  Receive Date: 20200604
  Receipt Date: 20200605
  Transmission Date: 20200714
  Serious: No
  Sender: FDA-Public Use
  Company Number: US-US WORLDMEDS, LLC-USW202001-000048

PATIENT
  Age: 71 Year
  Sex: Male

DRUGS (21)
  1. LOSARTAN. [Concomitant]
     Active Substance: LOSARTAN
     Dosage: UNKNOWN
  2. HOMOCYSTEINE. [Concomitant]
     Active Substance: HOMOCYSTEINE
     Dosage: UNKNOWN
  3. COLACE [Concomitant]
     Active Substance: DOCUSATE SODIUM
     Dosage: UNKNOWN
  4. GOCCOVRI [Concomitant]
     Dosage: UNKNOWN
  5. MULTIVITAMIN [Concomitant]
     Active Substance: VITAMINS
     Dosage: UNKNOWN
  6. AZELASTINE HCL [Concomitant]
     Active Substance: AZELASTINE HYDROCHLORIDE
     Dosage: UNKNOWN
  7. AMIODARONE [Concomitant]
     Active Substance: AMIODARONE
     Dosage: UNKNOWN
  8. APOKYN [Suspect]
     Active Substance: APOMORPHINE HYDROCHLORIDE
     Indication: PARKINSON^S DISEASE
     Dosage: TITRATION (MORE THAN 0.3 ML)
     Route: 058
     Dates: start: 20200107
  9. ALPHA LIPOIC ACID [Concomitant]
     Active Substance: .ALPHA.-LIPOIC ACID
     Dosage: UNKNOWN
  10. METHYLCELLULOSE [Concomitant]
     Active Substance: METHYLCELLULOSES
     Dosage: UNKNOWN
  11. HTZ [Concomitant]
     Active Substance: HYDROCHLOROTHIAZIDE
     Dosage: UNKNOWN
  12. APOKYN [Suspect]
     Active Substance: APOMORPHINE HYDROCHLORIDE
     Route: 058
     Dates: start: 20200107, end: 20200301
  13. TADALAFIL. [Concomitant]
     Active Substance: TADALAFIL
     Dosage: UNKNOWN
  14. FINASTERIDE. [Concomitant]
     Active Substance: FINASTERIDE
     Dosage: UNKNOWN
  15. AZITHROMYCIN ANHYDROUS. [Concomitant]
     Active Substance: AZITHROMYCIN ANHYDROUS
     Dosage: UNKNOWN
  16. ASA [Concomitant]
     Active Substance: ASPIRIN
     Dosage: UNKNOWN
  17. AMITIZA [Concomitant]
     Active Substance: LUBIPROSTONE
     Dosage: UNKNOWN
  18. RYTARY [Concomitant]
     Active Substance: CARBIDOPA\LEVODOPA
     Dosage: UNKNOWN
  19. PHAZYME [Concomitant]
     Active Substance: DIMETHICONE 410
     Dosage: UNKNOWN
  20. PANTOPRAZOLE [Concomitant]
     Active Substance: PANTOPRAZOLE
     Dosage: UNKNOWN
  21. AMLODIPINE [Concomitant]
     Active Substance: AMLODIPINE BESYLATE
     Dosage: UNKNOWN

REACTIONS (5)
  - Fear of injection [Recovered/Resolved]
  - Somnolence [Recovered/Resolved]
  - Rhinorrhoea [Recovered/Resolved]
  - Nausea [Recovered/Resolved]
  - Diarrhoea [Recovered/Resolved]

NARRATIVE: CASE EVENT DATE: 20200112
